FAERS Safety Report 15443838 (Version 2)
Quarter: 2018Q4

REPORT INFORMATION
  Report Type: Spontaneous
  Country: CA (occurrence: CA)
  Receive Date: 20180928
  Receipt Date: 20181116
  Transmission Date: 20190204
  Serious: No
  Sender: FDA-Public Use
  Company Number: CA-PFIZER INC-2018386181

PATIENT
  Age: 68 Year
  Sex: Female

DRUGS (4)
  1. VENOFER [Concomitant]
     Active Substance: IRON SUCROSE
     Dosage: UNK
     Route: 065
  2. ESOMEPRAZOLE. [Concomitant]
     Active Substance: ESOMEPRAZOLE MAGNESIUM
     Indication: GASTRIC DISORDER
  3. PREDNISONE. [Concomitant]
     Active Substance: PREDNISONE
     Dosage: 8.5 MG, 1X/DAY
  4. METHOTREXATE SODIUM. [Suspect]
     Active Substance: METHOTREXATE SODIUM
     Dosage: 10 MG, WEEKLY
     Route: 058

REACTIONS (2)
  - Hepatic enzyme increased [Unknown]
  - Drug effect incomplete [Unknown]
